FAERS Safety Report 25946388 (Version 3)
Quarter: 2025Q4

REPORT INFORMATION
  Report Type: Spontaneous
  Country: US (occurrence: US)
  Receive Date: 20251022
  Receipt Date: 20251127
  Transmission Date: 20260117
  Serious: No
  Sender: TOLMAR
  Company Number: US-Tolmar-TLM-2025-07456

PATIENT

DRUGS (3)
  1. ELIGARD [Suspect]
     Active Substance: LEUPROLIDE ACETATE
     Indication: Prostate cancer
     Dosage: EXPIRATION DATES: JAN-2027; DEC-2026; 31-DEC-2026?DOSE NOT ADMINISTERED?GTIN: (01)10362935227103
  2. ELIGARD [Suspect]
     Active Substance: LEUPROLIDE ACETATE
     Dosage: REPLACEMENT DOSE
  3. DEVICE [Suspect]
     Active Substance: DEVICE
     Indication: Prostate cancer
     Dosage: EXPIRATION DATES: JAN-2027; DEC-2026; 31-DEC-2026?GTIN: (01)10362935227103

REACTIONS (2)
  - Intercepted product preparation error [Unknown]
  - Device occlusion [Unknown]
